FAERS Safety Report 5874129-5 (Version None)
Quarter: 2008Q3

REPORT INFORMATION
  Report Type: 
  Country: None (occurrence: None)
  Receive Date: 20080905
  Receipt Date: 20080905
  Transmission Date: 20090109
  Serious: Yes (Hospitalization)
  Sender: FDA-Public Use
  Company Number: None

PATIENT
  Age: 53 Year
  Sex: Female
  Weight: 48.2 kg

DRUGS (17)
  1. CARBOPLATIN [Suspect]
     Indication: BREAST CANCER STAGE IV
     Dosage: 156 MG ONCE WEEKLY X 3 IV
     Route: 042
     Dates: start: 20080505, end: 20080815
  2. ABRAXANE [Suspect]
     Dosage: 80 MG/M2 ONCE WEEKLY X 3 IV
     Route: 042
     Dates: start: 20080505, end: 20080815
  3. EFFEXOR [Concomitant]
  4. LEXAPRO [Concomitant]
  5. XANAX [Concomitant]
  6. FENTANYL [Concomitant]
  7. TYLENOL (CAPLET) [Concomitant]
  8. IBUPROFEN [Concomitant]
  9. NEXIUM [Concomitant]
  10. ZOFRAN [Concomitant]
  11. DECADRON SRC [Concomitant]
  12. NEUPOGEN [Concomitant]
  13. BENADRYL [Concomitant]
  14. OPANA [Concomitant]
  15. RITALIN [Concomitant]
  16. COLACE [Concomitant]
  17. IRON SUPPLEMENT [Concomitant]

REACTIONS (2)
  - DEHYDRATION [None]
  - HYPONATRAEMIA [None]
